FAERS Safety Report 5211995-0 (Version None)
Quarter: 2007Q1

REPORT INFORMATION
  Report Type: 
  Country: None (occurrence: None)
  Receive Date: 20070118
  Receipt Date: 20070117
  Transmission Date: 20070707
  Serious: Yes (Hospitalization)
  Sender: FDA-Public Use
  Company Number: FR-GLAXOSMITHKLINE-B0454097A

PATIENT
  Age: 40 Year
  Sex: Female

DRUGS (5)
  1. ZELITREX [Suspect]
     Indication: HERPES ZOSTER
     Dosage: 1TAB SIX TIMES PER DAY
     Route: 048
     Dates: start: 20061125, end: 20061210
  2. TEGRETOL [Suspect]
     Indication: HERPES ZOSTER
     Dosage: 200MG TWICE PER DAY
     Route: 048
     Dates: start: 20061125, end: 20061210
  3. EPIVIR [Concomitant]
     Route: 065
     Dates: start: 20061201
  4. VIREAD [Concomitant]
     Route: 065
     Dates: start: 20061201
  5. VIDEX [Concomitant]
     Route: 065
     Dates: start: 20061201

REACTIONS (10)
  - BLOOD CREATINE PHOSPHOKINASE INCREASED [None]
  - CHOLESTASIS [None]
  - EOSINOPHILIA [None]
  - FACE OEDEMA [None]
  - HYPERSENSITIVITY [None]
  - LIVER DISORDER [None]
  - PYREXIA [None]
  - RASH MACULO-PAPULAR [None]
  - RASH PUSTULAR [None]
  - TRANSAMINASES INCREASED [None]
